FAERS Safety Report 23351808 (Version 1)
Quarter: 2023Q4

REPORT INFORMATION
  Report Type: Report from Study
  Country: US (occurrence: None)
  Receive Date: 20231229
  Receipt Date: 20231229
  Transmission Date: 20240110
  Serious: Yes (Other)
  Sender: FDA-Public Use
  Company Number: 2023A294225

PATIENT
  Sex: Male

DRUGS (7)
  1. FASENRA [Suspect]
     Active Substance: BENRALIZUMAB
     Indication: Asthma
     Dosage: 30MG/ML EVERY EIGHT WEEKS
     Route: 058
     Dates: start: 20220824
  2. ALBUTEROL AER HFA [Concomitant]
  3. INBRIJA [Concomitant]
     Active Substance: LEVODOPA
  4. OZEMPIC [Concomitant]
     Active Substance: SEMAGLUTIDE
  5. PREDNISONE [Concomitant]
     Active Substance: PREDNISONE
  6. TRELEGY AER ELLIPTA [Concomitant]
  7. TYLENOL [Concomitant]
     Active Substance: ACETAMINOPHEN

REACTIONS (3)
  - Chronic obstructive pulmonary disease [Unknown]
  - Impaired quality of life [Unknown]
  - Drug ineffective [Unknown]
